FAERS Safety Report 22246128 (Version 4)
Quarter: 2023Q2

REPORT INFORMATION
  Report Type: Spontaneous
  Country: US (occurrence: US)
  Receive Date: 20230424
  Receipt Date: 20230616
  Transmission Date: 20230722
  Serious: Yes (Other)
  Sender: FDA-Public Use
  Company Number: US-PFIZER INC-PV202300071002

PATIENT
  Age: 9 Year
  Sex: Female
  Weight: 11.79 kg

DRUGS (2)
  1. GENOTROPIN [Suspect]
     Active Substance: SOMATROPIN
     Indication: Hormone level abnormal
     Dosage: 0.4 MG, DAILY
  2. GENOTROPIN [Suspect]
     Active Substance: SOMATROPIN
     Dosage: 0.6 UNKNOWN UNIT ONCE A NIGHT

REACTIONS (3)
  - Drug level decreased [Unknown]
  - Underdose [Unknown]
  - Expired device used [Unknown]
